FAERS Safety Report 23868915 (Version 2)
Quarter: 2024Q3

REPORT INFORMATION
  Report Type: Report from Study
  Country: IN (occurrence: IN)
  Receive Date: 20240517
  Receipt Date: 20240812
  Transmission Date: 20241017
  Serious: Yes (Other)
  Sender: NOVARTIS
  Company Number: IN-002147023-NVSC2022IN217339

PATIENT
  Age: 48 Year
  Sex: Female

DRUGS (2)
  1. RIBOCICLIB [Suspect]
     Active Substance: RIBOCICLIB
     Indication: Breast cancer
     Dosage: 600 MG, QD
     Route: 065
     Dates: start: 20190704, end: 20200204
  2. RIBOCICLIB [Suspect]
     Active Substance: RIBOCICLIB
     Indication: Breast cancer metastatic
     Dosage: 400 MG, QD
     Route: 065
     Dates: start: 20200708

REACTIONS (9)
  - Breast cancer [Unknown]
  - Malignant neoplasm progression [Unknown]
  - Rash [Recovered/Resolved]
  - White blood cell count decreased [Unknown]
  - Metastases to bone [Unknown]
  - Osteosclerosis [Unknown]
  - Dermatitis allergic [Recovered/Resolved]
  - Product use issue [Unknown]
  - Peau d^orange [Unknown]

NARRATIVE: CASE EVENT DATE: 20190708
